FAERS Safety Report 6773080-6 (Version None)
Quarter: 2010Q2

REPORT INFORMATION
  Report Type: 
  Country: None (occurrence: None)
  Receive Date: 20100616
  Receipt Date: 20100605
  Transmission Date: 20101027
  Serious: Yes (Other)
  Sender: FDA-Public Use
  Company Number: AR-PFIZER INC-2010057238

PATIENT
  Age: 57 Year
  Sex: Female
  Weight: 72 kg

DRUGS (1)
  1. LYRICA [Suspect]
     Indication: FIBROMYALGIA
     Dosage: 75 MG, 2X/DAY
     Route: 048

REACTIONS (9)
  - ANAPHYLACTIC REACTION [None]
  - BURNING SENSATION [None]
  - CONJUNCTIVAL OEDEMA [None]
  - COUGH [None]
  - FACE OEDEMA [None]
  - HYPOTENSION [None]
  - LARYNGEAL OEDEMA [None]
  - TACHYCARDIA [None]
  - THROAT IRRITATION [None]
